FAERS Safety Report 21994653 (Version 1)
Quarter: 2023Q1

REPORT INFORMATION
  Report Type: Spontaneous
  Country: CA (occurrence: CA)
  Receive Date: 20230215
  Receipt Date: 20230215
  Transmission Date: 20230418
  Serious: Yes (Other)
  Sender: FDA-Public Use
  Company Number: CA-PFIZER INC-202300063449

PATIENT
  Age: 83 Year
  Sex: Male

DRUGS (3)
  1. MIDAZOLAM [Suspect]
     Active Substance: MIDAZOLAM
     Dosage: UNK
  2. FENTANYL [Suspect]
     Active Substance: FENTANYL
     Dosage: UNK
  3. HURRICAINE [Concomitant]
     Active Substance: BENZOCAINE
     Dosage: UNK

REACTIONS (4)
  - Aspiration [Unknown]
  - Hypoxia [Unknown]
  - Chest X-ray abnormal [Unknown]
  - Oxygen therapy [Unknown]
